FAERS Safety Report 4618060-1 (Version None)
Quarter: 2005Q1

REPORT INFORMATION
  Report Type: 
  Country: None (occurrence: None)
  Receive Date: 20050322
  Receipt Date: 20050309
  Transmission Date: 20050727
  Serious: Yes (Hospitalization)
  Sender: FDA-Public Use
  Company Number: 2005042344

PATIENT
  Age: 49 Year
  Sex: Female
  Weight: 92.9874 kg

DRUGS (5)
  1. CELEBREX [Suspect]
     Indication: ARTHRITIS
     Dosage: (200 MG,) ORAL
     Route: 048
  2. CELEBREX [Suspect]
     Indication: FIBROMYALGIA
     Dosage: (200 MG,) ORAL
     Route: 048
  3. DETROL LA [Suspect]
     Indication: HYPERTONIC BLADDER
     Dosage: 4 MG (4 MG, 1 IN 1 D), ORAL
     Route: 048
     Dates: start: 20040101
  4. NEURONTIN [Suspect]
     Indication: BACK DISORDER
  5. LISINOPRIL [Concomitant]

REACTIONS (5)
  - CHEST PAIN [None]
  - DIABETES MELLITUS [None]
  - HIATUS HERNIA [None]
  - INTERVERTEBRAL DISC PROTRUSION [None]
  - MICTURITION DISORDER [None]
